FAERS Safety Report 5679837-7 (Version None)
Quarter: 2008Q1

REPORT INFORMATION
  Report Type: 
  Country: None (occurrence: None)
  Receive Date: 20080321
  Receipt Date: 20080310
  Transmission Date: 20080703
  Serious: No
  Sender: FDA-Public Use
  Company Number: 2008-170914-NL

PATIENT
  Age: 38 Year
  Sex: Female

DRUGS (4)
  1. ETONOGESTREL [Suspect]
     Indication: CONTRACEPTION
     Dosage: DF
     Route: 058
     Dates: start: 20050601, end: 20080122
  2. PROCHLORPERAZINE [Concomitant]
  3. CO-CODAMOL [Concomitant]
  4. LEVOTHYROXINE SODIUM [Concomitant]

REACTIONS (3)
  - AMENORRHOEA [None]
  - METRORRHAGIA [None]
  - THYROID CANCER [None]
